FAERS Safety Report 8778644 (Version 1)
Quarter: 2012Q4

REPORT INFORMATION
  Report Type: 
  Country: KR (occurrence: KR)
  Receive Date: 20120912
  Receipt Date: 20120912
  Transmission Date: 20130627
  Serious: Yes (Hospitalization)
  Sender: FDA-Public Use
  Company Number: PHHY2012KR077300

PATIENT
  Age: 36 Year
  Sex: Male

DRUGS (2)
  1. CLOPIDOGREL [Suspect]
     Indication: ANTIPLATELET THERAPY
     Dosage: 75 mg, UNK
  2. ACETYLSALICYLIC ACID [Suspect]
     Indication: ANTIPLATELET THERAPY
     Dosage: 100 mg, UNK

REACTIONS (7)
  - Abdominal pain upper [Recovered/Resolved]
  - Murphy^s sign positive [Recovered/Resolved]
  - Cholecystitis acute [Recovered/Resolved]
  - Ecchymosis [Recovered/Resolved]
  - Thrombosis [Recovered/Resolved]
  - Cholelithiasis [Recovered/Resolved]
  - Haemobilia [Recovered/Resolved]
